FAERS Safety Report 14433303 (Version 1)
Quarter: 2018Q1

REPORT INFORMATION
  Report Type: Spontaneous
  Country: US (occurrence: US)
  Receive Date: 20180124
  Receipt Date: 20180124
  Transmission Date: 20180509
  Serious: Yes (Hospitalization, Disabling, Other)
  Sender: FDA-Public Use
  Company Number: US-PIRAMAL CRITICAL CARE LIMITED-2017-PEL-003107

PATIENT

DRUGS (8)
  1. CLONAZEPAM. [Concomitant]
     Active Substance: CLONAZEPAM
     Dosage: 1.25 MG, BID
     Route: 048
  2. CLONAZEPAM. [Concomitant]
     Active Substance: CLONAZEPAM
     Dosage: 0.5 MG, BID
     Route: 048
  3. CANNABIS [Concomitant]
     Active Substance: CANNABIS SATIVA SUBSP. INDICA TOP
     Dosage: PER HOME DOSE
     Route: 065
  4. KEPPRA [Concomitant]
     Active Substance: LEVETIRACETAM
     Dosage: 2000 MG, UNK
     Route: 065
     Dates: start: 20170817
  5. GABLOFEN [Suspect]
     Active Substance: BACLOFEN
     Indication: PRODUCT USED FOR UNKNOWN INDICATION
     Dosage: 2000 ?G, QD
     Route: 037
  6. GABLOFEN [Suspect]
     Active Substance: BACLOFEN
     Dosage: 96 ?G, QD
     Route: 037
  7. KEPPRA [Concomitant]
     Active Substance: LEVETIRACETAM
     Dosage: 2000 MG, UNK
     Route: 065
     Dates: start: 20170816
  8. CLONAZEPAM. [Concomitant]
     Active Substance: CLONAZEPAM
     Dosage: 2.5 MG, BID
     Route: 048

REACTIONS (9)
  - Implant site infection [Unknown]
  - Withdrawal syndrome [Recovered/Resolved]
  - Burning sensation [Unknown]
  - Muscle tightness [Unknown]
  - Wound dehiscence [Unknown]
  - Cerebrovascular accident [Unknown]
  - Pruritus [Unknown]
  - Muscle spasms [Unknown]
  - Device malfunction [Recovered/Resolved]

NARRATIVE: CASE EVENT DATE: 20170625
